FAERS Safety Report 15300802 (Version 5)
Quarter: 2018Q4

REPORT INFORMATION
  Report Type: Report from Study
  Country: CA (occurrence: CA)
  Receive Date: 20180821
  Receipt Date: 20181127
  Transmission Date: 20190204
  Serious: Yes (Hospitalization)
  Sender: FDA-Public Use
  Company Number: CA-JNJFOC-20180816664

PATIENT
  Age: 64 Year
  Sex: Male

DRUGS (2)
  1. IMBRUVICA [Suspect]
     Active Substance: IBRUTINIB
     Indication: WALDENSTROM^S MACROGLOBULINAEMIA
     Route: 048
     Dates: start: 20181109
  2. IMBRUVICA [Suspect]
     Active Substance: IBRUTINIB
     Indication: WALDENSTROM^S MACROGLOBULINAEMIA
     Dosage: STRENGTH = 140 MG
     Route: 048

REACTIONS (11)
  - Chest pain [Recovering/Resolving]
  - Increased tendency to bruise [Unknown]
  - Rash [Unknown]
  - Dyspnoea [Unknown]
  - Haemorrhage [Unknown]
  - Hypercalcaemia [Unknown]
  - Lymph node pain [Unknown]
  - Chills [Unknown]
  - Tremor [Unknown]
  - Rash erythematous [Not Recovered/Not Resolved]
  - Hyperhidrosis [Unknown]

NARRATIVE: CASE EVENT DATE: 20180928
